FAERS Safety Report 9101676 (Version 1)
Quarter: 2013Q1

REPORT INFORMATION
  Report Type: Spontaneous
  Country: US (occurrence: US)
  Receive Date: 20130218
  Receipt Date: 20130218
  Transmission Date: 20140127
  Serious: Yes (Death, Life-Threatening, Other)
  Sender: FDA-Public Use
  Company Number: US-COVIDIEN/TYCO HEALTHCARE/MALLINCKRODT-T201300416

PATIENT
  Age: 17 Year
  Sex: Male

DRUGS (1)
  1. METHADOSE [Suspect]
     Indication: PAIN
     Dosage: UNK
     Route: 048

REACTIONS (5)
  - Intentional drug misuse [Fatal]
  - Toxicity to various agents [Fatal]
  - Cardiac arrest [Recovered/Resolved]
  - Brain oedema [Unknown]
  - Treatment noncompliance [Unknown]
